FAERS Safety Report 20874296 (Version 1)
Quarter: 2022Q2

REPORT INFORMATION
  Report Type: Spontaneous
  Country: CN (occurrence: CN)
  Receive Date: 20220525
  Receipt Date: 20220525
  Transmission Date: 20220721
  Serious: Yes (Hospitalization, Other)
  Sender: FDA-Public Use
  Company Number: CN-PFIZER INC-202200744173

PATIENT
  Age: 70 Year
  Sex: Male
  Weight: 56 kg

DRUGS (6)
  1. LIPITOR [Suspect]
     Active Substance: ATORVASTATIN CALCIUM
     Indication: Angiosclerosis
     Dosage: 20.000 MG, 1X/DAY
     Route: 048
     Dates: start: 20211228, end: 20220110
  2. METHIMAZOLE [Suspect]
     Active Substance: METHIMAZOLE
     Indication: Hyperthyroidism
     Dosage: 10.000 MG, 2X/DAY
     Route: 048
     Dates: start: 20211230, end: 20220110
  3. DIOVAN [Suspect]
     Active Substance: VALSARTAN
     Indication: Hypertension
     Dosage: 80 MG, 1X/DAY
     Route: 048
     Dates: start: 20220102, end: 20220110
  4. LANTUS [Concomitant]
     Active Substance: INSULIN GLARGINE
     Indication: Blood glucose increased
     Dosage: 8 IU, 1X/DAY
     Route: 058
     Dates: start: 20220109, end: 20220110
  5. CALCIUM DOBESILATE [Concomitant]
     Active Substance: CALCIUM DOBESILATE
     Indication: Diabetic retinopathy
     Dosage: 0.5 G, 3X/DAY
     Route: 048
     Dates: start: 20220106, end: 20220110
  6. INSULIN ASPART [Concomitant]
     Active Substance: INSULIN ASPART
     Indication: Blood glucose increased
     Dosage: 12 IU, 1X/DAY
     Route: 058
     Dates: start: 20211228, end: 20220110

REACTIONS (2)
  - Liver injury [Recovered/Resolved]
  - Hyperthyroidism [Unknown]

NARRATIVE: CASE EVENT DATE: 20211230
